FAERS Safety Report 6690068-4 (Version None)
Quarter: 2010Q2

REPORT INFORMATION
  Report Type: 
  Country: None (occurrence: None)
  Receive Date: 20100421
  Receipt Date: 20100408
  Transmission Date: 20101027
  Serious: Yes (Death, Hospitalization, Other)
  Sender: FDA-Public Use
  Company Number: US-ELI_LILLY_AND_COMPANY-US201002007346

PATIENT
  Age: 80 Year
  Sex: Female

DRUGS (2)
  1. FORTEO [Suspect]
     Indication: OSTEOPOROSIS
     Dosage: 20 UG, DAILY (1/D)
     Dates: start: 20090101, end: 20100201
  2. COUMADIN [Concomitant]

REACTIONS (5)
  - CONVULSION [None]
  - DEEP VEIN THROMBOSIS [None]
  - FALL [None]
  - HAEMORRHAGE INTRACRANIAL [None]
  - SYNCOPE [None]
